FAERS Safety Report 25608897 (Version 1)
Quarter: 2025Q3

REPORT INFORMATION
  Report Type: Spontaneous
  Country: US (occurrence: US)
  Receive Date: 20250726
  Receipt Date: 20250726
  Transmission Date: 20251021
  Serious: No
  Sender: AMGEN
  Company Number: US-AMGEN-USASP2025145364

PATIENT
  Age: 60 Year
  Sex: Male

DRUGS (2)
  1. AIMOVIG [Suspect]
     Active Substance: ERENUMAB-AOOE
     Indication: Product used for unknown indication
     Dosage: 140 MILLIGRAM, QMO
     Route: 065
  2. AIMOVIG [Suspect]
     Active Substance: ERENUMAB-AOOE
     Dosage: 140 MILLIGRAM, QMO
     Route: 065

REACTIONS (6)
  - Therapeutic product effect decreased [Unknown]
  - Drug dose omission by device [Unknown]
  - Device difficult to use [Unknown]
  - Memory impairment [Unknown]
  - Bedridden [Unknown]
  - Device use error [Unknown]

NARRATIVE: CASE EVENT DATE: 20250721
